FAERS Safety Report 24168353 (Version 1)
Quarter: 2024Q3

REPORT INFORMATION
  Report Type: Spontaneous
  Country: US (occurrence: None)
  Receive Date: 20240802
  Receipt Date: 20240802
  Transmission Date: 20241016
  Serious: No
  Sender: Public
  Company Number: None

PATIENT
  Age: 68 Year
  Sex: Female

DRUGS (1)
  1. JAKAFI [Suspect]
     Active Substance: RUXOLITINIB
     Dosage: 60 TOT - TOTAL TICE A DAY ORAL
     Route: 048
     Dates: start: 20230327

REACTIONS (1)
  - Alopecia [None]

NARRATIVE: CASE EVENT DATE: 20240802
